FAERS Safety Report 17217013 (Version 1)
Quarter: 2019Q4

REPORT INFORMATION
  Report Type: Spontaneous
  Country: US (occurrence: US)
  Receive Date: 20191231
  Receipt Date: 20191231
  Transmission Date: 20200122
  Serious: No
  Sender: FDA-Public Use
  Company Number: US-APOTEX-2019AP017886

PATIENT
  Sex: Female

DRUGS (2)
  1. NATURE-THROID [Concomitant]
     Active Substance: THYROID, PORCINE
     Indication: HYPOTHYROIDISM
     Dosage: 1 DF, UNK
     Route: 065
  2. CALCITONIN SALMON. [Suspect]
     Active Substance: CALCITONIN SALMON
     Indication: PRODUCT USED FOR UNKNOWN INDICATION
     Dosage: UNK, ONE SPRAY IN ONE NOSTRIL DAILY
     Route: 045

REACTIONS (4)
  - Nasal discomfort [Recovered/Resolved]
  - Rhinorrhoea [Unknown]
  - Treatment noncompliance [Unknown]
  - Throat irritation [Unknown]
